FAERS Safety Report 16651876 (Version 1)
Quarter: 2019Q3

REPORT INFORMATION
  Report Type: Spontaneous
  Country: US (occurrence: US)
  Receive Date: 20190731
  Receipt Date: 20190731
  Transmission Date: 20191004
  Serious: Yes (Hospitalization, Disabling, Other)
  Sender: FDA-Public Use
  Company Number: US-JNJFOC-20190736212

PATIENT
  Age: 48 Year
  Sex: Male

DRUGS (1)
  1. INVOKAMET [Suspect]
     Active Substance: CANAGLIFLOZIN\METFORMIN HYDROCHLORIDE
     Indication: TYPE 2 DIABETES MELLITUS
     Dosage: IN VARYING DOSE OF 50-1000 MG
     Route: 048
     Dates: end: 2015

REACTIONS (4)
  - Osteomyelitis [Recovering/Resolving]
  - Foot amputation [Unknown]
  - Diabetic foot infection [Recovering/Resolving]
  - Wound abscess [Recovering/Resolving]

NARRATIVE: CASE EVENT DATE: 2014
